FAERS Safety Report 8549284-9 (Version None)
Quarter: 2012Q3

REPORT INFORMATION
  Report Type: 
  Country: None (occurrence: None)
  Receive Date: 20120730
  Receipt Date: 20120724
  Transmission Date: 20120928
  Serious: No
  Sender: FDA-Public Use
  Company Number: US-B.I. PHARMACEUTICALS,INC./RIDGEFIELD-2012-BP-16472BP

PATIENT
  Sex: Male

DRUGS (2)
  1. PAIN MEDICATION [Concomitant]
     Indication: PAIN
  2. TRADJENTA [Suspect]
     Indication: TYPE 2 DIABETES MELLITUS
     Dosage: 5 MG
     Route: 048
     Dates: start: 20120501

REACTIONS (2)
  - FALL [None]
  - MEMORY IMPAIRMENT [None]
